FAERS Safety Report 9785770 (Version 2)
Quarter: 2013Q4

REPORT INFORMATION
  Report Type: Spontaneous
  Country: FR (occurrence: FR)
  Receive Date: 20131227
  Receipt Date: 20131227
  Transmission Date: 20140711
  Serious: Yes (Hospitalization)
  Sender: FDA-Public Use
  Company Number: FR-009507513-2012SP030460

PATIENT
  Age: 62 Year
  Sex: Male
  Weight: 90 kg

DRUGS (11)
  1. VICTRELIS [Suspect]
     Indication: HEPATITIS C
     Dosage: 2.4 G, QD
     Dates: start: 20110627
  2. PEGASYS [Suspect]
     Indication: HEPATITIS C
     Dosage: 150 ?G, QW
     Dates: start: 20110531
  3. COPEGUS [Suspect]
     Indication: HEPATITIS C
     Dosage: 1600 MG, QD
     Dates: start: 20110531
  4. SEROPRAM [Suspect]
     Indication: DEPRESSION
     Dosage: 20 MG, BID
     Dates: start: 20110301, end: 20110627
  5. LYSANXIA [Suspect]
     Indication: DEPRESSION
     Dosage: 10 MG, BID
     Dates: start: 20100921, end: 20110228
  6. LYSANXIA [Suspect]
     Dosage: 20 MG, TID
     Dates: start: 20110301, end: 20110627
  7. LYSANXIA [Suspect]
     Dosage: 40 MG, QD
     Dates: start: 20110627
  8. STILNOX [Suspect]
     Indication: INSOMNIA
     Dosage: 10 MG, QD
     Dates: start: 201009
  9. VITAMIN K5 HYDROCHLORIDE [Suspect]
     Indication: EMBOLISM
     Dosage: UNK
     Dates: start: 20071010
  10. VITAMIN K5 HYDROCHLORIDE [Suspect]
     Indication: PHLEBITIS
  11. EFFEXOR [Suspect]
     Indication: DEPRESSION
     Dosage: 75 MG, QD

REACTIONS (1)
  - Depression [Recovered/Resolved]
